FAERS Safety Report 7702173-1 (Version None)
Quarter: 2011Q3

REPORT INFORMATION
  Report Type: 
  Country: None (occurrence: None)
  Receive Date: 20110822
  Receipt Date: 20110809
  Transmission Date: 20111222
  Serious: Yes (Hospitalization)
  Sender: FDA-Public Use
  Company Number: IT-MYLANLABS-2011S1016644

PATIENT
  Age: 49 Year
  Sex: Male

DRUGS (1)
  1. METHADONE HYDROCHLORIDE [Suspect]
     Indication: SUICIDE ATTEMPT
     Route: 042

REACTIONS (3)
  - COMA [None]
  - INTENTIONAL OVERDOSE [None]
  - LEUKOENCEPHALOPATHY [None]
